FAERS Safety Report 5934636-3 (Version None)
Quarter: 2008Q4

REPORT INFORMATION
  Report Type: 
  Country: None (occurrence: None)
  Receive Date: 20081029
  Receipt Date: 20081017
  Transmission Date: 20090506
  Serious: Yes (Death)
  Sender: FDA-Public Use
  Company Number: JP-PFIZER INC-2008088348

PATIENT

DRUGS (1)
  1. HALCION [Suspect]

REACTIONS (1)
  - POISONING [None]
